FAERS Safety Report 17742606 (Version 1)
Quarter: 2020Q2

REPORT INFORMATION
  Report Type: Spontaneous
  Country: US (occurrence: US)
  Receive Date: 20200504
  Receipt Date: 20200504
  Transmission Date: 20200714
  Serious: Yes (Hospitalization, Other)
  Sender: FDA-Public Use
  Company Number: US-TEVA-2020-US-1228345

PATIENT
  Age: 52 Year
  Sex: Male

DRUGS (99)
  1. MUPIROCIN. [Concomitant]
     Active Substance: MUPIROCIN
  2. BISACODYL. [Concomitant]
     Active Substance: BISACODYL
  3. POTASSIUM CHLORIDE. [Concomitant]
     Active Substance: POTASSIUM CHLORIDE
  4. HYDROCODONE/ACETAMINOPHEN [Concomitant]
     Active Substance: ACETAMINOPHEN\HYDROCODONE
  5. TRIAMCINOLONE [Concomitant]
     Active Substance: TRIAMCINOLONE
  6. PREDNISONE. [Concomitant]
     Active Substance: PREDNISONE
  7. TACROLIMUS. [Concomitant]
     Active Substance: TACROLIMUS
  8. HALOBETASOL [Concomitant]
     Active Substance: HALOBETASOL PROPIONATE
  9. AMLODIPINE BESYLATE. [Concomitant]
     Active Substance: AMLODIPINE BESYLATE
  10. OFLOXACIN. [Concomitant]
     Active Substance: OFLOXACIN
  11. PROTONIX [Concomitant]
     Active Substance: PANTOPRAZOLE SODIUM
  12. ONDANSETRON [Concomitant]
     Active Substance: ONDANSETRON
  13. NYSTATIN. [Concomitant]
     Active Substance: NYSTATIN
  14. ZOLPIDEM [Concomitant]
     Active Substance: ZOLPIDEM TARTRATE
  15. MEGACE [Concomitant]
     Active Substance: MEGESTROL ACETATE
  16. ANUCORT-HC [Concomitant]
     Active Substance: HYDROCORTISONE ACETATE
  17. IMIQUIMOD. [Concomitant]
     Active Substance: IMIQUIMOD
  18. CONDYLOX [Concomitant]
     Active Substance: PODOFILOX
  19. ALPRAZOLAM. [Concomitant]
     Active Substance: ALPRAZOLAM
  20. FLUOCINONIDE. [Concomitant]
     Active Substance: FLUOCINONIDE
  21. FENTANYL. [Concomitant]
     Active Substance: FENTANYL
  22. AMMONIUM LACTATE. [Concomitant]
     Active Substance: AMMONIUM LACTATE
  23. KETOCONAZOLE. [Concomitant]
     Active Substance: KETOCONAZOLE
  24. ZIAGEN [Concomitant]
     Active Substance: ABACAVIR SULFATE
  25. PROPRANOLOL [Concomitant]
     Active Substance: PROPRANOLOL HYDROCHLORIDE
  26. CIPROFLOXACIN. [Concomitant]
     Active Substance: CIPROFLOXACIN
  27. SULFAMETH/TRIMETH [Concomitant]
     Active Substance: SULFAMETHOXAZOLE\TRIMETHOPRIM
  28. FLUOXETINE [Concomitant]
     Active Substance: FLUOXETINE HYDROCHLORIDE
  29. KENALOG [Concomitant]
     Active Substance: TRIAMCINOLONE ACETONIDE
  30. METHYLPREDNISOLONE. [Concomitant]
     Active Substance: METHYLPREDNISOLONE
  31. CLINDAMYCIN. [Concomitant]
     Active Substance: CLINDAMYCIN
  32. DIAZEPAM. [Concomitant]
     Active Substance: DIAZEPAM
  33. CETIRIZINE [Concomitant]
     Active Substance: CETIRIZINE HYDROCHLORIDE
  34. HYDROXYZINE HCL [Concomitant]
     Active Substance: HYDROXYZINE HYDROCHLORIDE
  35. AMCINONIDE. [Concomitant]
     Active Substance: AMCINONIDE
  36. VITAMIN B1 [Concomitant]
     Active Substance: THIAMINE HYDROCHLORIDE
  37. DOXYCYCLINE HYCLATE. [Concomitant]
     Active Substance: DOXYCYCLINE HYCLATE
  38. FUROSEMIDE. [Concomitant]
     Active Substance: FUROSEMIDE
  39. DOXEPIN [Concomitant]
     Active Substance: DOXEPIN
  40. PHENADOZ [Concomitant]
     Active Substance: PROMETHAZINE HYDROCHLORIDE
  41. VERAMYST [Concomitant]
     Active Substance: FLUTICASONE FUROATE
  42. ORAVIG [Concomitant]
     Active Substance: MICONAZOLE
  43. PROMETHAZINE [Concomitant]
     Active Substance: PROMETHAZINE HYDROCHLORIDE
  44. CEPHALEXIN. [Concomitant]
     Active Substance: CEPHALEXIN
  45. CLOBETASOL PROPIONATE. [Concomitant]
     Active Substance: CLOBETASOL PROPIONATE
  46. GABAPENTIN. [Concomitant]
     Active Substance: GABAPENTIN
  47. ELIQUIS [Concomitant]
     Active Substance: APIXABAN
  48. NEXIUM [Concomitant]
     Active Substance: ESOMEPRAZOLE MAGNESIUM
  49. ATENOLOL. [Concomitant]
     Active Substance: ATENOLOL
  50. FEXOFENADINE [Concomitant]
     Active Substance: FEXOFENADINE HYDROCHLORIDE
  51. WAL FEX [Concomitant]
     Active Substance: FEXOFENADINE HYDROCHLORIDE
  52. AMOXI CLAV [Concomitant]
     Active Substance: AMOXICILLIN\CLAVULANATE POTASSIUM
  53. LOPERAMIDE [Concomitant]
     Active Substance: LOPERAMIDE
  54. PROMETHEGAN [Concomitant]
     Active Substance: PROMETHAZINE HYDROCHLORIDE
  55. HYDROCORTISONE VALERATE. [Concomitant]
     Active Substance: HYDROCORTISONE VALERATE
  56. MUCUS RELIEF [Concomitant]
     Active Substance: GUAIFENESIN
  57. CALCITRIOL. [Concomitant]
     Active Substance: CALCITRIOL
  58. DESCOVY [Concomitant]
     Active Substance: EMTRICITABINE\TENOFOVIR ALAFENAMIDE FUMARATE
  59. LISINOPRIL. [Concomitant]
     Active Substance: LISINOPRIL
  60. FLUCONAZOLE. [Concomitant]
     Active Substance: FLUCONAZOLE
  61. BACTROBAN [Concomitant]
     Active Substance: MUPIROCIN\MUPIROCIN CALCIUM
  62. MORPHINE SULFATE. [Concomitant]
     Active Substance: MORPHINE SULFATE
  63. SERTRALINE [Concomitant]
     Active Substance: SERTRALINE HYDROCHLORIDE
  64. AVELOX [Concomitant]
     Active Substance: MOXIFLOXACIN HYDROCHLORIDE
  65. CLOTRIMAZOLE AND BETAMETHASONE [Concomitant]
     Active Substance: BETAMETHASONE\CLOTRIMAZOLE
  66. FOLIC ACID. [Concomitant]
     Active Substance: FOLIC ACID
  67. LEXAPRO [Concomitant]
     Active Substance: ESCITALOPRAM OXALATE
  68. ALLEGRA [Concomitant]
     Active Substance: FEXOFENADINE HYDROCHLORIDE
  69. TIVICAY [Concomitant]
     Active Substance: DOLUTEGRAVIR SODIUM
  70. TENOFOVIR TEVA [Suspect]
     Active Substance: TENOFOVIR
     Indication: HIV INFECTION
     Route: 065
     Dates: start: 201801, end: 20180621
  71. KALETRA [Suspect]
     Active Substance: LOPINAVIR\RITONAVIR
     Route: 065
  72. MAG G [Concomitant]
     Active Substance: MAGNESIUM GLUCONATE
  73. CLOTRIMAZOLE. [Concomitant]
     Active Substance: CLOTRIMAZOLE
  74. TERBINAFINE. [Concomitant]
     Active Substance: TERBINAFINE
  75. DAPSONE. [Concomitant]
     Active Substance: DAPSONE
  76. ACEPHEN [Concomitant]
     Active Substance: ACETAMINOPHEN
  77. ABACAVIR. [Concomitant]
     Active Substance: ABACAVIR
  78. LEVOFLOXACIN. [Concomitant]
     Active Substance: LEVOFLOXACIN
  79. ESOMEPRAZOLE MAGNESIUM. [Concomitant]
     Active Substance: ESOMEPRAZOLE MAGNESIUM
  80. METRONIDAZOLE. [Concomitant]
     Active Substance: METRONIDAZOLE
  81. MOXIFLOXACIN. [Concomitant]
     Active Substance: MOXIFLOXACIN
  82. OMEPRAZOLE. [Concomitant]
     Active Substance: OMEPRAZOLE
  83. LORAZEPAM. [Concomitant]
     Active Substance: LORAZEPAM
  84. PROAIR HFA [Concomitant]
     Active Substance: ALBUTEROL SULFATE
  85. PROVENTIL HFA [Concomitant]
     Active Substance: ALBUTEROL SULFATE
  86. KLOR-CON [Concomitant]
     Active Substance: POTASSIUM CHLORIDE
  87. TENOFOVIR [Suspect]
     Active Substance: TENOFOVIR
     Indication: HIV INFECTION
     Dosage: MCLEODS
     Route: 065
     Dates: start: 201803, end: 20180621
  88. LEVETIRACETAM. [Concomitant]
     Active Substance: LEVETIRACETAM
  89. AMOXICILLIN. [Concomitant]
     Active Substance: AMOXICILLIN
  90. AZITHROMYCIN ANHYDROUS. [Concomitant]
     Active Substance: AZITHROMYCIN ANHYDROUS
  91. CHLORHEXIDINE [Concomitant]
     Active Substance: CHLORHEXIDINE
  92. METOPROLOL. [Concomitant]
     Active Substance: METOPROLOL
  93. VITAMIN B6 [Concomitant]
     Active Substance: PYRIDOXINE HYDROCHLORIDE
  94. ESCITALOPRAM [Concomitant]
     Active Substance: ESCITALOPRAM OXALATE
  95. ENSURE ACTIVE HIGH PROTEIN [Concomitant]
  96. TRAZODONE [Concomitant]
     Active Substance: TRAZODONE HYDROCHLORIDE
  97. CALCIPOTRIENE. [Concomitant]
     Active Substance: CALCIPOTRIENE
  98. CYCLOPHOSPHAMIDE. [Concomitant]
     Active Substance: CYCLOPHOSPHAMIDE
  99. INSULIN [Concomitant]
     Active Substance: INSULIN NOS

REACTIONS (2)
  - Renal tubular acidosis [Unknown]
  - Anti-neutrophil cytoplasmic antibody positive vasculitis [Unknown]
